FAERS Safety Report 14579727 (Version 1)
Quarter: 2018Q1

REPORT INFORMATION
  Report Type: Report from Study
  Country: None (occurrence: BR)
  Receive Date: 20180227
  Receipt Date: 20180227
  Transmission Date: 20180509
  Serious: Yes (Other)
  Sender: FDA-Public Use
  Company Number: BR-ABBVIE-18K-020-2266831-00

PATIENT
  Age: 43 Year
  Sex: Male

DRUGS (1)
  1. HUMIRA [Suspect]
     Active Substance: ADALIMUMAB
     Indication: ANKYLOSING SPONDYLITIS
     Route: 058
     Dates: start: 20160428, end: 20180205

REACTIONS (4)
  - Tarsal tunnel syndrome [Unknown]
  - Foot operation [Unknown]
  - Tendonitis [Unknown]
  - Nerve compression [Unknown]

NARRATIVE: CASE EVENT DATE: 201706
